FAERS Safety Report 7716289-7 (Version None)
Quarter: 2011Q3

REPORT INFORMATION
  Report Type: 
  Country: None (occurrence: None)
  Receive Date: 20110815
  Receipt Date: 20110629
  Transmission Date: 20111222
  Serious: Yes (Hospitalization)
  Sender: FDA-Public Use
  Company Number: 11-000764

PATIENT
  Age: 46 Year
  Sex: Female

DRUGS (1)
  1. LOESTRIN FE 1.5/30 [Suspect]
     Indication: DYSFUNCTIONAL UTERINE BLEEDING
     Dosage: 10/1000UG, QD, ORAL
     Route: 048
     Dates: start: 20110426, end: 20110601

REACTIONS (1)
  - PULMONARY EMBOLISM [None]
